FAERS Safety Report 15359577 (Version 3)
Quarter: 2019Q3

REPORT INFORMATION
  Report Type: Spontaneous
  Country: US (occurrence: US)
  Receive Date: 20180907
  Receipt Date: 20190719
  Transmission Date: 20191004
  Serious: Yes (Death, Hospitalization, Other)
  Sender: FDA-Public Use
  Company Number: US-ASTRAZENECA-2018SF10061

PATIENT
  Age: 24608 Day
  Sex: Female
  Weight: 72.6 kg

DRUGS (78)
  1. NEXIUM [Suspect]
     Active Substance: ESOMEPRAZOLE MAGNESIUM
     Indication: GASTROOESOPHAGEAL REFLUX DISEASE
     Dosage: GENERIC
     Route: 065
     Dates: start: 2003, end: 2008
  2. ALCOHOL. [Concomitant]
     Active Substance: ALCOHOL
     Indication: DIABETES MELLITUS
     Dates: start: 2003, end: 2009
  3. AMOX-CLAV [Concomitant]
     Active Substance: AMOXICILLIN\CLAVULANATE POTASSIUM
     Indication: INFECTION
     Dates: start: 2012, end: 2017
  4. ATORVASTATIN [Concomitant]
     Active Substance: ATORVASTATIN
     Indication: HYPERLIPIDAEMIA
     Dates: start: 2016
  5. DILTIAZEM. [Concomitant]
     Active Substance: DILTIAZEM
     Indication: HYPERTENSION
     Dates: start: 2004, end: 2008
  6. FLUTICASONE. [Concomitant]
     Active Substance: FLUTICASONE
     Indication: HYPERSENSITIVITY
     Dates: start: 2007, end: 2009
  7. FUROSEMIDE. [Concomitant]
     Active Substance: FUROSEMIDE
     Indication: FLUID RETENTION
     Dates: start: 2005, end: 2016
  8. HUMALOG [Concomitant]
     Active Substance: INSULIN LISPRO
  9. LISINOPRIL. [Concomitant]
     Active Substance: LISINOPRIL
  10. MOMETASONE [Concomitant]
     Active Substance: MOMETASONE
  11. SPIRONOLACTONE. [Concomitant]
     Active Substance: SPIRONOLACTONE
  12. ATROVENT HFA [Concomitant]
     Active Substance: IPRATROPIUM BROMIDE
     Indication: CHRONIC OBSTRUCTIVE PULMONARY DISEASE
     Dates: start: 2014, end: 2015
  13. CETIRIZINE [Concomitant]
     Active Substance: CETIRIZINE HYDROCHLORIDE
     Indication: HYPERSENSITIVITY
     Dates: start: 2012, end: 2013
  14. LORATADINE. [Concomitant]
     Active Substance: LORATADINE
  15. PROCHLORPERAZINE. [Concomitant]
     Active Substance: PROCHLORPERAZINE
  16. NEXIUM [Suspect]
     Active Substance: ESOMEPRAZOLE MAGNESIUM
     Indication: GASTROOESOPHAGEAL REFLUX DISEASE
     Route: 048
     Dates: start: 2012, end: 2016
  17. KLOR-CON [Concomitant]
     Active Substance: POTASSIUM CHLORIDE
  18. LEVOFLOXACIN. [Concomitant]
     Active Substance: LEVOFLOXACIN
  19. NITROGLYCERIN. [Concomitant]
     Active Substance: NITROGLYCERIN
  20. SOTALOL. [Concomitant]
     Active Substance: SOTALOL
  21. VITAMIN D2 [Concomitant]
     Active Substance: ERGOCALCIFEROL
  22. NEXIUM [Suspect]
     Active Substance: ESOMEPRAZOLE MAGNESIUM
     Indication: GASTROOESOPHAGEAL REFLUX DISEASE
     Dosage: GENERIC
     Route: 065
     Dates: start: 2017
  23. AMLODIPINE BESYLATE. [Concomitant]
     Active Substance: AMLODIPINE BESYLATE
     Indication: HYPERTENSION
     Dates: start: 2012, end: 2017
  24. ASPIRIN. [Concomitant]
     Active Substance: ASPIRIN
     Indication: CHEST PAIN
     Dates: start: 2003, end: 2004
  25. ETODOLAC. [Concomitant]
     Active Substance: ETODOLAC
     Indication: ANALGESIC THERAPY
     Dates: start: 2012
  26. HYDRALAZINE [Concomitant]
     Active Substance: HYDRALAZINE HYDROCHLORIDE
  27. LOSARTAN POTASSIUM. [Concomitant]
     Active Substance: LOSARTAN POTASSIUM
  28. NIFEDIPINE. [Concomitant]
     Active Substance: NIFEDIPINE
  29. LUNESTA [Concomitant]
     Active Substance: ESZOPICLONE
  30. NEXIUM [Suspect]
     Active Substance: ESOMEPRAZOLE MAGNESIUM
     Indication: GASTROOESOPHAGEAL REFLUX DISEASE
     Route: 048
     Dates: start: 2003, end: 2017
  31. CARVEDILOL. [Concomitant]
     Active Substance: CARVEDILOL
     Indication: HYPERTENSION
     Dates: start: 2012, end: 2016
  32. DOXYCYCLINE. [Concomitant]
     Active Substance: DOXYCYCLINE
     Indication: INFECTION
     Dates: start: 2008
  33. ENALAPRIL [Concomitant]
     Active Substance: ENALAPRIL
     Indication: HYPERTENSION
     Dates: start: 2003, end: 2008
  34. HYDROCODONE-APAP [Concomitant]
     Active Substance: ACETAMINOPHEN\HYDROCODONE
  35. IBUPROFEN. [Concomitant]
     Active Substance: IBUPROFEN
  36. LORAZEPAM. [Concomitant]
     Active Substance: LORAZEPAM
  37. METOPROLOL. [Concomitant]
     Active Substance: METOPROLOL
  38. METRONIDAZOLE. [Concomitant]
     Active Substance: METRONIDAZOLE
  39. MISOPROSTOL. [Concomitant]
     Active Substance: MISOPROSTOL
  40. MONTELUKAST [Concomitant]
     Active Substance: MONTELUKAST SODIUM
  41. NITROFURANTOIN. [Concomitant]
     Active Substance: NITROFURANTOIN
  42. OXYBUTYNIN. [Concomitant]
     Active Substance: OXYBUTYNIN CHLORIDE
  43. PROAIR HFA [Concomitant]
     Active Substance: ALBUTEROL SULFATE
  44. NEXIUM [Suspect]
     Active Substance: ESOMEPRAZOLE MAGNESIUM
     Indication: GASTROOESOPHAGEAL REFLUX DISEASE
     Route: 048
     Dates: start: 20130807
  45. ACETAMINOPHEN-CODEINE [Concomitant]
     Active Substance: ACETAMINOPHEN\CODEINE PHOSPHATE
     Indication: ANALGESIC THERAPY
     Dates: start: 2016, end: 2017
  46. ACYCLOVIR. [Concomitant]
     Active Substance: ACYCLOVIR
     Indication: ANALGESIC THERAPY
     Dates: start: 2015
  47. ADVAIR DISKUS [Concomitant]
     Active Substance: FLUTICASONE PROPIONATE\SALMETEROL XINAFOATE
     Indication: CHRONIC OBSTRUCTIVE PULMONARY DISEASE
     Dates: start: 2013, end: 2017
  48. CEPHALEXIN. [Concomitant]
     Active Substance: CEPHALEXIN
     Indication: INFECTION
     Dates: start: 2005
  49. CLINDAMYCIN. [Concomitant]
     Active Substance: CLINDAMYCIN
     Indication: INFECTION
     Dates: start: 2013
  50. CYCLOBENZAPRINE. [Concomitant]
     Active Substance: CYCLOBENZAPRINE
     Indication: BACK PAIN
     Dates: start: 2004
  51. DUREZOL [Concomitant]
     Active Substance: DIFLUPREDNATE
     Indication: EYE SWELLING
     Dates: start: 2013
  52. HYDROXYZINE [Concomitant]
     Active Substance: HYDROXYZINE HYDROCHLORIDE
  53. METHOCARBAMOL. [Concomitant]
     Active Substance: METHOCARBAMOL
  54. MOXIFLOXACIN. [Concomitant]
     Active Substance: MOXIFLOXACIN
  55. SIMVASTATIN. [Concomitant]
     Active Substance: SIMVASTATIN
  56. VITAMIN D3 [Concomitant]
     Active Substance: CHOLECALCIFEROL
  57. TRAZODONE [Concomitant]
     Active Substance: TRAZODONE HYDROCHLORIDE
  58. IPRATROPIUM [Concomitant]
     Active Substance: IPRATROPIUM
  59. ZOFRAN [Concomitant]
     Active Substance: ONDANSETRON HYDROCHLORIDE
  60. CIPROFLOXACIN HCL [Concomitant]
     Active Substance: CIPROFLOXACIN HYDROCHLORIDE
     Indication: INFECTION
     Dates: start: 2016
  61. CRESTOR [Concomitant]
     Active Substance: ROSUVASTATIN CALCIUM
     Indication: HYPERLIPIDAEMIA
     Dates: start: 2012, end: 2015
  62. HUMULIN NOS [Concomitant]
     Active Substance: INSULIN HUMAN
  63. HYDROCHLOROTHIAZIDE. [Concomitant]
     Active Substance: HYDROCHLOROTHIAZIDE
  64. METOLAZONE. [Concomitant]
     Active Substance: METOLAZONE
  65. PROMETHAZINE [Concomitant]
     Active Substance: PROMETHAZINE HYDROCHLORIDE
  66. VENTOLIN [Concomitant]
     Active Substance: ALBUTEROL SULFATE
  67. CARVEDILOL. [Concomitant]
     Active Substance: CARVEDILOL
  68. GABAPENTIN. [Concomitant]
     Active Substance: GABAPENTIN
  69. PAMELOR [Concomitant]
     Active Substance: NORTRIPTYLINE HYDROCHLORIDE
  70. CEPHALEXIN. [Concomitant]
     Active Substance: CEPHALEXIN
     Indication: INFECTION
     Dates: start: 2003
  71. CYCLOBENZAPRINE. [Concomitant]
     Active Substance: CYCLOBENZAPRINE
     Indication: BACK PAIN
     Dates: start: 2015, end: 2016
  72. ISOSORBIDE. [Concomitant]
     Active Substance: ISOSORBIDE
  73. LANTUS [Concomitant]
     Active Substance: INSULIN GLARGINE
  74. NYSTATIN. [Concomitant]
     Active Substance: NYSTATIN
  75. TRAMADOL. [Concomitant]
     Active Substance: TRAMADOL
  76. VIGAMOX [Concomitant]
     Active Substance: MOXIFLOXACIN HYDROCHLORIDE
  77. WARFARIN [Concomitant]
     Active Substance: WARFARIN
  78. DEMADEX [Concomitant]
     Active Substance: TORSEMIDE

REACTIONS (5)
  - Acute respiratory failure [Fatal]
  - Chronic kidney disease [Unknown]
  - Acute kidney injury [Unknown]
  - End stage renal disease [Unknown]
  - Nephrogenic anaemia [Unknown]

NARRATIVE: CASE EVENT DATE: 20150710
